FAERS Safety Report 7990578-3 (Version None)
Quarter: 2011Q4

REPORT INFORMATION
  Report Type: 
  Country: None (occurrence: None)
  Receive Date: 20111219
  Receipt Date: 20110526
  Transmission Date: 20120403
  Serious: No
  Sender: FDA-Public Use
  Company Number: US-ASTRAZENECA-2008UW05891

PATIENT
  Age: 90 Year
  Sex: Female
  Weight: 78 kg

DRUGS (19)
  1. CRESTOR [Suspect]
     Route: 048
  2. LASIX [Concomitant]
  3. ASPIRIN [Concomitant]
  4. CRESTOR [Suspect]
     Indication: BLOOD CHOLESTEROL INCREASED
     Route: 048
     Dates: start: 20071201
  5. ZETIA [Concomitant]
  6. DETROL [Concomitant]
  7. NORVASC [Concomitant]
  8. CENTRUM [Concomitant]
  9. CLARITIN [Concomitant]
  10. METOPROLOL TARTRATE [Concomitant]
  11. MECLIZINE [Concomitant]
     Dosage: TOTAL DAILY DOSE- 12.5 MG, BID
  12. FISH OIL [Concomitant]
  13. TRIAMTERENE [Concomitant]
  14. ALDACTONE [Concomitant]
  15. CRESTOR [Suspect]
     Route: 048
     Dates: start: 20090101, end: 20110301
  16. CRESTOR [Suspect]
     Route: 048
  17. NEXIUM [Concomitant]
     Route: 048
  18. SYNTHROID [Concomitant]
  19. WARFARIN SODIUM [Concomitant]

REACTIONS (2)
  - MYALGIA [None]
  - NEUROPATHY PERIPHERAL [None]
